FAERS Safety Report 9016984 (Version 3)
Quarter: 2013Q1

REPORT INFORMATION
  Report Type: Spontaneous
  Country: JP (occurrence: JP)
  Receive Date: 20130117
  Receipt Date: 20130201
  Transmission Date: 20140127
  Serious: Yes (Hospitalization)
  Sender: FDA-Public Use
  Company Number: JP-VERTEX PHARMACEUTICALS INC.-2013-000653

PATIENT
  Age: 63 Year
  Sex: Male

DRUGS (14)
  1. TELAVIC [Suspect]
     Indication: CHRONIC HEPATITIS C
     Dosage: 2250 MG, QD
     Route: 048
     Dates: start: 20121025, end: 20121130
  2. TELAVIC [Suspect]
     Dosage: 2250 MG, QD
     Route: 048
     Dates: start: 20121203, end: 20121207
  3. RIBAVIRIN [Suspect]
     Indication: CHRONIC HEPATITIS C
     Dosage: 800 MG, QD
     Route: 048
     Dates: start: 20121025, end: 20121207
  4. PEGINTERFERON ALFA-2B [Suspect]
     Indication: CHRONIC HEPATITIS C
     Dosage: 1.5 ?G/KG, QW
     Route: 058
     Dates: start: 20121025, end: 20121205
  5. NORVASC [Concomitant]
     Dosage: 5 MG, QD
     Route: 048
  6. DEPAS [Concomitant]
     Dosage: 0.5 MG, QD
     Route: 048
     Dates: start: 20121026, end: 20121207
  7. VOLTAREN [Concomitant]
     Dosage: 25 MG, QD
     Route: 048
     Dates: start: 20121128, end: 20121203
  8. TAKEPRON [Concomitant]
     Dosage: 1 DF, QD
     Route: 048
     Dates: start: 20121203, end: 20121207
  9. MYSLEE [Concomitant]
     Dosage: 5 MG, PRN
     Route: 048
     Dates: start: 20121203, end: 20121220
  10. CALONAL [Concomitant]
     Dosage: 1 DF, QD
     Route: 048
     Dates: start: 20121203, end: 20121212
  11. ATARAX [Concomitant]
     Dosage: 25 MG, QD
     Route: 048
     Dates: start: 20121211, end: 20121217
  12. REBAMIPIDE [Concomitant]
     Dosage: 300 MG, QD
     Route: 048
     Dates: start: 20121226, end: 20130103
  13. PREDONINE [Concomitant]
     Dosage: 10 MG, QD
     Route: 048
     Dates: start: 20130104, end: 20130107
  14. PREDONINE [Concomitant]
     Dosage: 5 MG, QD
     Route: 048
     Dates: start: 20130108, end: 20130112

REACTIONS (3)
  - Erythema multiforme [Recovered/Resolved]
  - Constipation [Recovered/Resolved]
  - Rash [Recovered/Resolved]
